FAERS Safety Report 6515683-X (Version None)
Quarter: 2009Q4

REPORT INFORMATION
  Report Type: 
  Country: None (occurrence: None)
  Receive Date: 20091223
  Receipt Date: 20090604
  Transmission Date: 20100525
  Serious: Yes (Death, Hospitalization, Congenital Anomaly)
  Sender: FDA-Public Use
  Company Number: US-SANOFI-AVENTIS-A01200905975

PATIENT
  Sex: Female

DRUGS (9)
  1. MYCOPHENOLATE MOFETIL [Suspect]
     Route: 064
  2. METOPROLOL TARTRATE [Suspect]
     Route: 064
  3. FUROSEMIDE [Suspect]
     Indication: DRUG EXPOSURE DURING PREGNANCY
     Route: 064
  4. AMLODIPINE [Suspect]
     Route: 064
  5. TACROLIMUS [Concomitant]
     Dosage: DOSE TEXT: 3 MG IN THE MORNING AND 2 MG AT NIGHT
     Route: 064
  6. EPOGEN [Concomitant]
     Route: 065
  7. VITAMINS [Concomitant]
     Route: 064
  8. ACYCLOVIR [Concomitant]
     Route: 064
  9. PREDNISONE [Concomitant]
     Route: 064

REACTIONS (2)
  - DRUG EXPOSURE DURING PREGNANCY [None]
  - MULTIPLE CONGENITAL ABNORMALITIES [None]
